FAERS Safety Report 7477052-8 (Version None)
Quarter: 2011Q2

REPORT INFORMATION
  Report Type: 
  Country: None (occurrence: None)
  Receive Date: 20110512
  Receipt Date: 20110509
  Transmission Date: 20111010
  Serious: Yes (Death, Hospitalization, Disabling, Other)
  Sender: FDA-Public Use
  Company Number: US-MERCK-0810USA00408

PATIENT
  Age: 57 Year
  Sex: Female

DRUGS (2)
  1. ZOMETA [Suspect]
     Route: 065
  2. FOSAMAX [Suspect]
     Indication: OSTEOPOROSIS PROPHYLAXIS
     Route: 048
     Dates: start: 19990901, end: 20050101

REACTIONS (13)
  - ORAL DISORDER [None]
  - BREAST CANCER METASTATIC [None]
  - TOOTH EXTRACTION [None]
  - OSTEITIS [None]
  - OSTEONECROSIS OF JAW [None]
  - HORMONE LEVEL ABNORMAL [None]
  - ORAL INFECTION [None]
  - ADVERSE EVENT [None]
  - DENTAL CARIES [None]
  - PERIODONTAL DISEASE [None]
  - DEATH [None]
  - BLOOD CHOLESTEROL INCREASED [None]
  - TOOTH FRACTURE [None]
